FAERS Safety Report 12138244 (Version 2)
Quarter: 2016Q1

REPORT INFORMATION
  Report Type: Report from Study
  Country: US (occurrence: US)
  Receive Date: 20160302
  Receipt Date: 20160302
  Transmission Date: 20160526
  Serious: Yes (Other)
  Sender: FDA-Public Use
  Company Number: US-SA-2016SA033950

PATIENT
  Sex: Female

DRUGS (4)
  1. PINDOLOL. [Suspect]
     Active Substance: PINDOLOL
     Route: 065
  2. ALLEGRA ALLERGY [Suspect]
     Active Substance: FEXOFENADINE HYDROCHLORIDE
     Route: 048
  3. CRESTOR [Suspect]
     Active Substance: ROSUVASTATIN CALCIUM
     Route: 065
  4. ACIPHEX [Suspect]
     Active Substance: RABEPRAZOLE SODIUM
     Route: 065

REACTIONS (4)
  - Hepatic enzyme abnormal [Unknown]
  - Mitral valve prolapse [Unknown]
  - Hyperlipidaemia [Unknown]
  - Essential hypertension [Unknown]
